FAERS Safety Report 6348507-4 (Version None)
Quarter: 2009Q3

REPORT INFORMATION
  Report Type: 
  Country: None (occurrence: None)
  Receive Date: 20090911
  Receipt Date: 20070406
  Transmission Date: 20100115
  Serious: Yes (Other)
  Sender: FDA-Public Use
  Company Number: US-ASTRAZENECA-2006UW07017

PATIENT
  Age: 46 Year
  Sex: Female
  Weight: 99.8 kg

DRUGS (14)
  1. SEROQUEL [Suspect]
     Indication: PSYCHOTIC DISORDER
     Dosage: 300MG INCREASED TO 600MG ON UNKNOWN DATE
     Route: 048
     Dates: start: 20020116
  2. SEROQUEL [Suspect]
     Dosage: 100 MG - 1200 MG
     Route: 048
     Dates: start: 20020116
  3. ZYPREXA [Concomitant]
     Dosage: 2.5 MG INCREASED TO 20 MG
     Dates: start: 20010801, end: 20011101
  4. ZYPREXA [Concomitant]
     Dosage: 20 MG DAILY
     Dates: start: 20011008
  5. TRAZODONE HCL [Concomitant]
     Dates: start: 20010901, end: 20011201
  6. NEURONTIN [Concomitant]
     Dates: start: 19990101, end: 20040101
  7. NEURONTIN [Concomitant]
     Dosage: STRENGTH 400 MG, 800 MG  DOSE 400 MG - 2800 MG
     Route: 048
     Dates: start: 20001006
  8. WELLBUTRIN [Concomitant]
     Dosage: STRENGTH 150 MG, 200 MG  DOSE 150 MG - 300 MG
     Dates: start: 20011008
  9. LEXAPRO [Concomitant]
     Dosage: STRENGTH 10 MG, 20 MG DAILY
     Dates: start: 20040301
  10. AMBIEN [Concomitant]
     Indication: INSOMNIA
     Dosage: 5 MG - 12.5 MG AT NIGHT AS PER REQUIRED
     Route: 048
     Dates: start: 20001006
  11. FENTANYL [Concomitant]
  12. VALIUM [Concomitant]
     Dates: start: 20050918
  13. HYDROCHLOROTHIAZIDE [Concomitant]
     Dates: start: 20050915
  14. DARVOCET-N 100 [Concomitant]
     Indication: PAIN
     Dosage: 100 MG 4 HR AS PER REQUIRED
     Dates: start: 20050915

REACTIONS (11)
  - BENIGN BREAST NEOPLASM [None]
  - BLADDER DISORDER [None]
  - BLOOD TRIGLYCERIDES INCREASED [None]
  - DIABETES MELLITUS [None]
  - DIABETIC GASTROPATHY [None]
  - HEPATITIS C [None]
  - HYPERGLYCAEMIA [None]
  - SYNCOPE [None]
  - TYPE 1 DIABETES MELLITUS [None]
  - TYPE 2 DIABETES MELLITUS [None]
  - WEIGHT INCREASED [None]
